FAERS Safety Report 21499908 (Version 2)
Quarter: 2022Q4

REPORT INFORMATION
  Report Type: Spontaneous
  Country: CA (occurrence: CA)
  Receive Date: 20221024
  Receipt Date: 20221128
  Transmission Date: 20230113
  Serious: Yes (Death, Other)
  Sender: FDA-Public Use
  Company Number: CA-PFIZER INC-202200364336

PATIENT
  Age: 37 Year
  Sex: Female

DRUGS (4)
  1. ZIRABEV [Suspect]
     Active Substance: BEVACIZUMAB-BVZR
     Indication: Glioma
     Dosage: 730 MG, 4 DOSES, Q21 DAYS
     Route: 042
     Dates: start: 20220317, end: 20220317
  2. ZIRABEV [Suspect]
     Active Substance: BEVACIZUMAB-BVZR
     Dosage: 550 MG, Q14DAYS
     Route: 042
     Dates: start: 20220317, end: 20220317
  3. ZIRABEV [Suspect]
     Active Substance: BEVACIZUMAB-BVZR
     Dosage: 550 MG
     Dates: start: 20220512
  4. LOMUSTINE [Concomitant]
     Active Substance: LOMUSTINE
     Indication: Glioma
     Dosage: UNK

REACTIONS (5)
  - Death [Fatal]
  - Neutropenia [Unknown]
  - Weight fluctuation [Unknown]
  - Off label use [Unknown]
  - Product dose omission issue [Unknown]

NARRATIVE: CASE EVENT DATE: 20220317
